FAERS Safety Report 10176283 (Version 1)
Quarter: 2014Q2

REPORT INFORMATION
  Report Type: Spontaneous
  Country: US (occurrence: US)
  Receive Date: 20140516
  Receipt Date: 20140516
  Transmission Date: 20141212
  Serious: No
  Sender: FDA-Public Use
  Company Number: US-PFIZER INC-2014132500

PATIENT
  Sex: Female

DRUGS (2)
  1. LEVOXYL [Suspect]
     Indication: HYPOTHYROIDISM
     Dosage: 0.137 MG, UNK
     Dates: start: 20140323
  2. SYNTHROID [Suspect]
     Dosage: UNK

REACTIONS (4)
  - Diarrhoea [Unknown]
  - Blood thyroid stimulating hormone decreased [Unknown]
  - Abdominal pain upper [Unknown]
  - Migraine [Unknown]
